FAERS Safety Report 25111365 (Version 5)
Quarter: 2025Q2

REPORT INFORMATION
  Report Type: Spontaneous
  Country: US (occurrence: US)
  Receive Date: 20250324
  Receipt Date: 20250517
  Transmission Date: 20250717
  Serious: No
  Sender: ROCHE
  Company Number: US-ROCHE-10000235314

PATIENT
  Age: 59 Year
  Sex: Female

DRUGS (4)
  1. XOLAIR PFS [Suspect]
     Active Substance: OMALIZUMAB
     Indication: Idiopathic urticaria
     Route: 058
     Dates: start: 202409
  2. XOLAIR PFS [Suspect]
     Active Substance: OMALIZUMAB
     Route: 058
     Dates: start: 202105
  3. MOUNJARO [Concomitant]
     Active Substance: TIRZEPATIDE
  4. OZEMPIC [Concomitant]
     Active Substance: SEMAGLUTIDE

REACTIONS (4)
  - Accidental underdose [Unknown]
  - Paraesthesia [Unknown]
  - Arthropod sting [Unknown]
  - Device issue [Unknown]

NARRATIVE: CASE EVENT DATE: 20250314
